FAERS Safety Report 5612526-3 (Version None)
Quarter: 2008Q1

REPORT INFORMATION
  Report Type: 
  Country: None (occurrence: None)
  Receive Date: 20080204
  Receipt Date: 20080122
  Transmission Date: 20080703
  Serious: Yes (Death)
  Sender: FDA-Public Use
  Company Number: US-KINGPHARMUSA00001-K200800124

PATIENT

DRUGS (8)
  1. AVINZA [Suspect]
     Route: 048
  2. METHOCARBAMOL [Suspect]
  3. METHADONE HCL [Suspect]
  4. LORAZEPAM [Suspect]
  5. CORTICOSTEROIDS [Suspect]
  6. FLECAINIDE ACETATE [Suspect]
  7. METOLAZONE [Suspect]
  8. POTASSIUM CHLORIDE [Suspect]

REACTIONS (1)
  - CARDIO-RESPIRATORY ARREST [None]
